FAERS Safety Report 24954945 (Version 1)
Quarter: 2025Q1

REPORT INFORMATION
  Report Type: Spontaneous
  Country: US (occurrence: None)
  Receive Date: 20250210
  Receipt Date: 20250210
  Transmission Date: 20250409
  Serious: Yes (Hospitalization)
  Sender: FDA-CTU
  Company Number: None

PATIENT
  Age: 68 Year
  Sex: Female
  Weight: 77.2 kg

DRUGS (11)
  1. LACOSAMIDE [Suspect]
     Active Substance: LACOSAMIDE
     Indication: Seizure
     Dosage: FREQUENCY : TWICE A DAY;?
     Route: 048
     Dates: start: 20240103, end: 20250207
  2. LEVETIRACETAM [Suspect]
     Active Substance: LEVETIRACETAM
  3. AMLODIPINE [Concomitant]
     Active Substance: AMLODIPINE BESYLATE
  4. ASPIRIN [Concomitant]
     Active Substance: ASPIRIN
  5. BREO ELLIPTA [Concomitant]
     Active Substance: FLUTICASONE FUROATE\VILANTEROL TRIFENATATE
  6. FAMOTIDINE [Concomitant]
     Active Substance: FAMOTIDINE
  7. FLUOXETINE [Concomitant]
     Active Substance: FLUOXETINE HYDROCHLORIDE
  8. Levothyroxlne [Concomitant]
  9. ROSUVASTATIN [Concomitant]
     Active Substance: ROSUVASTATIN
  10. Montelukasl [Concomitant]
  11. CETIRIZINE [Concomitant]
     Active Substance: CETIRIZINE HYDROCHLORIDE

REACTIONS (10)
  - Fall [None]
  - Sinus bradycardia [None]
  - Therapy cessation [None]
  - Electrocardiogram PR shortened [None]
  - Electrocardiogram ST-T change [None]
  - Myocardial infarction [None]
  - Electrocardiogram QRS complex abnormal [None]
  - Ejection fraction decreased [None]
  - Left ventricular hypertrophy [None]
  - Electrocardiogram ST-T segment abnormal [None]

NARRATIVE: CASE EVENT DATE: 20250207
